FAERS Safety Report 17026728 (Version 3)
Quarter: 2021Q2

REPORT INFORMATION
  Report Type: Report from Study
  Country: CO (occurrence: CO)
  Receive Date: 20191113
  Receipt Date: 20210512
  Transmission Date: 20210716
  Serious: Yes (Hospitalization)
  Sender: FDA-Public Use
  Company Number: PHHY2019CO226409

PATIENT
  Age: 64 Year
  Sex: Male
  Weight: 86 kg

DRUGS (10)
  1. GLIVEC [Suspect]
     Active Substance: IMATINIB MESYLATE
     Dosage: 400 MG, QD (STARTED 3 YEAR AGO))
     Route: 048
  2. ALLOPURINOL. [Concomitant]
     Active Substance: ALLOPURINOL
     Indication: PRODUCT USED FOR UNKNOWN INDICATION
     Dosage: 25 MG, QD
     Route: 048
  3. VILDAGLIPTIN [Suspect]
     Active Substance: VILDAGLIPTIN
     Indication: DIABETES MELLITUS
     Dosage: 50 MG, Q12H (2 YEARS AGO)
     Route: 048
  4. LOSARTAN. [Suspect]
     Active Substance: LOSARTAN
     Indication: HYPERTENSION
     Dosage: 1 DF, QD
     Route: 048
  5. LOPRESOR [Suspect]
     Active Substance: METOPROLOL
     Indication: PRODUCT USED FOR UNKNOWN INDICATION
     Dosage: 2 DF, QD
     Route: 048
  6. GLIVEC [Suspect]
     Active Substance: IMATINIB MESYLATE
     Indication: CHRONIC MYELOID LEUKAEMIA
     Dosage: 1 DF, QD (EVERY 24 HOURS)
     Route: 048
     Dates: start: 20190919
  7. METOPROLOL. [Suspect]
     Active Substance: METOPROLOL
     Indication: HYPERTENSION
     Dosage: 50 MG, QD (10 YEARS AGO)
     Route: 048
  8. GALVUS [Suspect]
     Active Substance: VILDAGLIPTIN
     Indication: PRODUCT USED FOR UNKNOWN INDICATION
     Dosage: 2 DF, QD
     Route: 048
  9. HYDROCHLOROTHIAZIDE. [Concomitant]
     Active Substance: HYDROCHLOROTHIAZIDE
     Indication: HYPERTENSION
     Dosage: 35 MG, QD
     Route: 048
  10. LOSARTAN. [Suspect]
     Active Substance: LOSARTAN
     Dosage: 50 MG, QD (STARTED 5 YEAR AGO))
     Route: 048

REACTIONS (16)
  - Cholecystitis infective [Unknown]
  - Pyrexia [Unknown]
  - Chills [Unknown]
  - Abdominal pain [Unknown]
  - Gastritis [Unknown]
  - Pyrexia [Recovered/Resolved]
  - Vomiting [Unknown]
  - COVID-19 [Unknown]
  - Headache [Recovered/Resolved]
  - Blood potassium decreased [Unknown]
  - Dizziness [Recovering/Resolving]
  - Cough [Recovered/Resolved]
  - Malaise [Recovering/Resolving]
  - Nasal congestion [Recovered/Resolved]
  - Ageusia [Recovered/Resolved]
  - Chest pain [Recovered/Resolved]

NARRATIVE: CASE EVENT DATE: 20190923
